FAERS Safety Report 8405789-2 (Version None)
Quarter: 2012Q2

REPORT INFORMATION
  Report Type: 
  Country: None (occurrence: None)
  Receive Date: 20120604
  Receipt Date: 20120529
  Transmission Date: 20120825
  Serious: Yes (Other)
  Sender: FDA-Public Use
  Company Number: US-PFIZER INC-2012130562

PATIENT
  Age: 52 Year
  Sex: Male

DRUGS (5)
  1. AVASTIN [Concomitant]
     Indication: RENAL CANCER METASTATIC
     Dosage: UNK
  2. LIPITOR [Suspect]
     Indication: BLOOD CHOLESTEROL INCREASED
     Dosage: 20 MG, 1X/DAY
     Route: 048
  3. ZOMETA [Concomitant]
     Indication: RENAL CANCER METASTATIC
     Dosage: UNK
  4. GEMCITABINE [Concomitant]
     Indication: RENAL CANCER METASTATIC
     Dosage: UNK
  5. CISPLATIN [Concomitant]
     Indication: RENAL CANCER METASTATIC
     Dosage: UNK

REACTIONS (2)
  - NEUROPATHY PERIPHERAL [None]
  - ANAEMIA [None]
